FAERS Safety Report 6694130-1 (Version None)
Quarter: 2010Q2

REPORT INFORMATION
  Report Type: 
  Country: None (occurrence: None)
  Receive Date: 20100423
  Receipt Date: 20090917
  Transmission Date: 20101027
  Serious: No
  Sender: FDA-Public Use
  Company Number: A0772784A

PATIENT
  Age: 77 Year
  Sex: Female

DRUGS (8)
  1. FLOVENT [Suspect]
     Indication: ASTHMA
     Route: 055
  2. SYNTHROID [Concomitant]
  3. ASPIRIN [Concomitant]
  4. ACCOLATE [Concomitant]
  5. ZOCOR [Concomitant]
  6. FLUVOXAMINE MALEATE [Concomitant]
  7. METOPROLOL TARTRATE [Concomitant]
  8. COZAAR [Concomitant]

REACTIONS (2)
  - DYSPNOEA [None]
  - PRODUCT QUALITY ISSUE [None]
